FAERS Safety Report 18013163 (Version 7)
Quarter: 2022Q2

REPORT INFORMATION
  Report Type: Spontaneous
  Country: US (occurrence: US)
  Receive Date: 20200713
  Receipt Date: 20220502
  Transmission Date: 20220721
  Serious: No
  Sender: FDA-Public Use
  Company Number: US-PFIZER INC-2019041688

PATIENT
  Age: 67 Year
  Sex: Female
  Weight: 60 kg

DRUGS (7)
  1. LYRICA [Suspect]
     Active Substance: PREGABALIN
     Indication: Pain in extremity
     Dosage: 300 MG, 2X/DAY
     Route: 048
     Dates: start: 201606
  2. LYRICA [Suspect]
     Active Substance: PREGABALIN
     Indication: Arthralgia
  3. LYRICA [Suspect]
     Active Substance: PREGABALIN
     Indication: Pain
  4. LYRICA [Suspect]
     Active Substance: PREGABALIN
     Indication: Neuralgia
  5. LYRICA [Suspect]
     Active Substance: PREGABALIN
     Indication: Neuritis
  6. LYRICA [Suspect]
     Active Substance: PREGABALIN
     Indication: Stress
  7. LYRICA [Suspect]
     Active Substance: PREGABALIN
     Indication: Peripheral nerve injury

REACTIONS (5)
  - Nasopharyngitis [Unknown]
  - Anxiety [Unknown]
  - Insomnia [Unknown]
  - Depressed mood [Unknown]
  - Dysphonia [Unknown]
